FAERS Safety Report 4886128-0 (Version None)
Quarter: 2006Q1

REPORT INFORMATION
  Report Type: 
  Country: None (occurrence: None)
  Receive Date: 20060120
  Receipt Date: 20060104
  Transmission Date: 20060701
  Serious: Yes (Disabling)
  Sender: FDA-Public Use
  Company Number: FR-AVENTIS-200610066FR

PATIENT
  Age: 60 Year
  Sex: Male

DRUGS (8)
  1. PYOSTACINE [Suspect]
     Indication: OSTEOMYELITIS
     Route: 048
     Dates: start: 20050801, end: 20051201
  2. PYOSTACINE [Suspect]
     Indication: DEVICE RELATED INFECTION
     Route: 048
     Dates: start: 20050801, end: 20051201
  3. RIFADIN [Suspect]
     Indication: OSTEOMYELITIS
     Route: 048
     Dates: start: 20050801
  4. RIFADIN [Suspect]
     Route: 048
     Dates: start: 20050801
  5. PARACETAMOL [Concomitant]
  6. LANZOR [Concomitant]
  7. GAVISCON [Concomitant]
  8. CARTEOLOL HCL [Concomitant]
     Indication: GLAUCOMA
     Dates: end: 20040101

REACTIONS (2)
  - DEAFNESS BILATERAL [None]
  - VISUAL FIELD DEFECT [None]
